FAERS Safety Report 8217763 (Version 16)
Quarter: 2014Q4

REPORT INFORMATION
  Report Type: Report from Study
  Country: US (occurrence: US)
  Receive Date: 20111101
  Receipt Date: 20141201
  Transmission Date: 20150529
  Serious: Yes (Hospitalization, Other)
  Sender: FDA-Public Use
  Company Number: US-GLAXOSMITHKLINE-A0951392A

PATIENT
  Age: 53 Year
  Sex: Female
  Weight: 67.7 kg

DRUGS (6)
  1. ALLEGRA [Concomitant]
     Active Substance: FEXOFENADINE HYDROCHLORIDE
  2. OMEPRAZOLE. [Concomitant]
     Active Substance: OMEPRAZOLE
  3. SALBUTAMOL SULPHATE [Suspect]
     Active Substance: ALBUTEROL SULFATE
     Indication: CHRONIC OBSTRUCTIVE PULMONARY DISEASE
     Route: 055
  4. PREDNISONE. [Suspect]
     Active Substance: PREDNISONE
  5. SALBUTAMOL SULPHATE [Suspect]
     Active Substance: ALBUTEROL SULFATE
     Indication: CHRONIC OBSTRUCTIVE PULMONARY DISEASE
     Route: 065
  6. NEBULIZER [Suspect]
     Active Substance: UNSPECIFIED INGREDIENT
     Route: 055

REACTIONS (29)
  - Respiratory tract infection [Recovering/Resolving]
  - Migraine [Unknown]
  - Fatigue [Unknown]
  - Gait disturbance [Unknown]
  - Inflammation [Unknown]
  - Tremor [Recovered/Resolved]
  - Dermatitis allergic [Unknown]
  - Hypoxia [Unknown]
  - Chest pain [Unknown]
  - Hypertension [Unknown]
  - Balance disorder [Unknown]
  - Chillblains [Unknown]
  - Confusional state [Unknown]
  - Intervertebral disc degeneration [Unknown]
  - Hypoaesthesia [Unknown]
  - Weight decreased [Unknown]
  - Rash [Unknown]
  - Mental impairment [Unknown]
  - Bundle branch block right [Unknown]
  - Dyspnoea [Unknown]
  - Malaise [Unknown]
  - Treatment noncompliance [Unknown]
  - Back pain [Unknown]
  - Muscle spasms [Unknown]
  - Infection [Unknown]
  - Depressed mood [Unknown]
  - Stress [Unknown]
  - Emphysema [Not Recovered/Not Resolved]
  - Productive cough [Not Recovered/Not Resolved]

NARRATIVE: CASE EVENT DATE: 201210
